FAERS Safety Report 5298359-9 (Version None)
Quarter: 2007Q2

REPORT INFORMATION
  Report Type: 
  Country: None (occurrence: None)
  Receive Date: 20070416
  Receipt Date: 20070405
  Transmission Date: 20071010
  Serious: Yes (Hospitalization, Other)
  Sender: FDA-Public Use
  Company Number: JP-PFIZER INC-2007024564

PATIENT
  Sex: Male
  Weight: 54.5 kg

DRUGS (10)
  1. UNASYN [Suspect]
     Indication: PNEUMONIA
     Dosage: DAILY DOSE:4.5GRAM
     Route: 042
     Dates: start: 20070302, end: 20070304
  2. FUTHAN [Suspect]
     Dosage: DAILY DOSE:50MG
     Route: 042
     Dates: start: 20070228, end: 20070305
  3. MIRACLID [Concomitant]
     Dosage: TEXT:150000 UNITS
     Route: 042
     Dates: start: 20070302, end: 20070319
  4. SULPERAZON [Concomitant]
     Route: 042
     Dates: start: 20070228, end: 20070301
  5. FOY [Concomitant]
     Route: 042
     Dates: start: 20070228, end: 20070319
  6. ZANTAC [Concomitant]
     Route: 048
     Dates: start: 20070302, end: 20070304
  7. DIART [Concomitant]
     Route: 048
     Dates: start: 20070302, end: 20070304
  8. ALDACTAZIDE [Concomitant]
     Route: 048
     Dates: start: 20070302, end: 20070304
  9. ARTIST [Concomitant]
     Route: 048
     Dates: start: 20070302, end: 20070304
  10. VALSARTAN [Concomitant]
     Route: 048
     Dates: start: 20070302, end: 20070304

REACTIONS (1)
  - PANCREATITIS ACUTE [None]
